FAERS Safety Report 6435797-2 (Version None)
Quarter: 2009Q4

REPORT INFORMATION
  Report Type: 
  Country: None (occurrence: None)
  Receive Date: 20091111
  Receipt Date: 20091106
  Transmission Date: 20100525
  Serious: Yes (Life-Threatening, Disabling, Other)
  Sender: FDA-Public Use
  Company Number: IT-BRISTOL-MYERS SQUIBB COMPANY-14807036

PATIENT
  Age: 65 Year
  Sex: Female
  Weight: 53 kg

DRUGS (3)
  1. CETUXIMAB [Suspect]
     Indication: NON-SMALL CELL LUNG CANCER
     Dosage: CETUXIMAB 5MG/ML;DISCONTINUED ON 31AUG09 AND RESTARTED ON 21SEP09
     Route: 042
     Dates: start: 20090615
  2. CISPLATIN [Suspect]
     Indication: NON-SMALL CELL LUNG CANCER
     Dosage: TEMPORARILY DISCONTINUED ON 24AUGO9,RECENT INF ON 31AUG09;ON DAY 1 OF 21-DAY CYCLE;
     Route: 042
     Dates: start: 20090615
  3. GEMCITABINE [Suspect]
     Indication: NON-SMALL CELL LUNG CANCER
     Dosage: ON DAY 1 + 8 OF 21-DAY CYCLE;TEMPORARILY DISCONTINUED ON 31AUG09
     Route: 042
     Dates: start: 20090615

REACTIONS (1)
  - THROMBOCYTOPENIA [None]
